FAERS Safety Report 7181176-2 (Version None)
Quarter: 2010Q4

REPORT INFORMATION
  Report Type: 
  Country: None (occurrence: None)
  Receive Date: 20101221
  Receipt Date: 20101216
  Transmission Date: 20110411
  Serious: Yes (Other)
  Sender: FDA-Public Use
  Company Number: US-PFIZER INC-2010164742

PATIENT
  Age: 21 Year
  Sex: Female

DRUGS (4)
  1. VORICONAZOLE [Suspect]
     Indication: PYREXIA
     Dosage: 6 MG/KG, EVERY 12 HOURS
     Route: 042
  2. VORICONAZOLE [Interacting]
     Indication: PANCYTOPENIA
     Dosage: 4 MG/KG, EVERY 12 HOURS
     Route: 042
  3. VORICONAZOLE [Interacting]
     Dosage: 200 MG, 2X/DAY
     Route: 048
  4. RETINOIC ACID [Interacting]
     Indication: ACUTE PROMYELOCYTIC LEUKAEMIA
     Dosage: UNK

REACTIONS (2)
  - BENIGN INTRACRANIAL HYPERTENSION [None]
  - DRUG INTERACTION [None]
